FAERS Safety Report 6979383-4 (Version None)
Quarter: 2010Q3

REPORT INFORMATION
  Report Type: 
  Country: None (occurrence: None)
  Receive Date: 20100910
  Receipt Date: 20100910
  Transmission Date: 20110219
  Serious: Yes (Hospitalization)
  Sender: FDA-Public Use
  Company Number: None

PATIENT
  Age: 75 Year
  Sex: Male
  Weight: 83.9154 kg

DRUGS (1)
  1. AMIODARONE HCL [Suspect]
     Indication: ATRIAL FIBRILLATION
     Dosage: 1 - 2  MG TWICE DAILY
     Dates: start: 20080601, end: 20090602

REACTIONS (2)
  - LUNG DISORDER [None]
  - THERAPEUTIC AGENT TOXICITY [None]
